FAERS Safety Report 13027643 (Version 1)
Quarter: 2016Q4

REPORT INFORMATION
  Report Type: Spontaneous
  Country: US (occurrence: US)
  Receive Date: 20161214
  Receipt Date: 20161214
  Transmission Date: 20170207
  Serious: No
  Sender: FDA-Public Use
  Company Number: US-MISSION PHARMACAL COMPANY-1060780

PATIENT
  Age: 43 Year
  Sex: Female

DRUGS (2)
  1. PATIENT IS ON THREE DIFFERENT ANTIBIOTICS:1 POST STONE SURGERY, 2RMSF [Concomitant]
  2. THIOLA [Suspect]
     Active Substance: TIOPRONIN
     Indication: AMINO ACID METABOLISM DISORDER
     Route: 065
     Dates: start: 20161121

REACTIONS (2)
  - Diarrhoea [Unknown]
  - Nausea [Unknown]
